FAERS Safety Report 14142725 (Version 1)
Quarter: 2017Q4

REPORT INFORMATION
  Report Type: Spontaneous
  Country: BR (occurrence: BR)
  Receive Date: 20171030
  Receipt Date: 20171030
  Transmission Date: 20180321
  Serious: Yes (Other)
  Sender: FDA-Public Use
  Company Number: BR-SA-2017SA207587

PATIENT

DRUGS (1)
  1. CLEXANE SAFETY LOCK [Suspect]
     Active Substance: ENOXAPARIN SODIUM
     Route: 064
     Dates: start: 20170828

REACTIONS (2)
  - Foetal exposure during pregnancy [Unknown]
  - Maternal therapy to enhance foetal lung maturity [Unknown]
